FAERS Safety Report 21328873 (Version 1)
Quarter: 2022Q3

REPORT INFORMATION
  Report Type: Spontaneous
  Country: US (occurrence: US)
  Receive Date: 20220913
  Receipt Date: 20220913
  Transmission Date: 20221027
  Serious: No
  Sender: FDA-Public Use
  Company Number: US-TEVA-2022-US-2069508

PATIENT
  Age: 75 Year
  Sex: Male

DRUGS (1)
  1. COPAXONE [Suspect]
     Active Substance: GLATIRAMER ACETATE
     Indication: Product used for unknown indication
     Dosage: 20 MG/ML DAILY
     Route: 065
     Dates: start: 1990

REACTIONS (4)
  - Muscular weakness [Unknown]
  - Product storage error [Unknown]
  - Needle issue [Unknown]
  - Device delivery system issue [Unknown]
